FAERS Safety Report 14138599 (Version 1)
Quarter: 2017Q4

REPORT INFORMATION
  Report Type: Spontaneous
  Country: US (occurrence: US)
  Receive Date: 20171027
  Receipt Date: 20171027
  Transmission Date: 20180321
  Serious: Yes (Hospitalization, Other)
  Sender: FDA-Public Use
  Company Number: US-BAUSCH-BL-2017-030104

PATIENT
  Sex: Male

DRUGS (1)
  1. XIFAXAN [Suspect]
     Active Substance: RIFAXIMIN
     Indication: PRODUCT USED FOR UNKNOWN INDICATION
     Dosage: FOR TWO YEARS
     Route: 065

REACTIONS (6)
  - Type 2 diabetes mellitus [Unknown]
  - Malaise [Unknown]
  - Hepatic cirrhosis [Unknown]
  - Treatment noncompliance [Unknown]
  - Portal hypertension [Unknown]
  - Hepatic encephalopathy [Unknown]
